FAERS Safety Report 26187933 (Version 1)
Quarter: 2025Q4

REPORT INFORMATION
  Report Type: Spontaneous
  Country: US (occurrence: US)
  Receive Date: 20251222
  Receipt Date: 20251222
  Transmission Date: 20260118
  Serious: No
  Sender: XERIS PHARMACEUTICALS
  Company Number: US-BRIAN CONNER SVP QUALITY AND CHIEF COMPLIANCE OFFICER-2025XER00860

PATIENT
  Sex: Female

DRUGS (1)
  1. GVOKE KIT [Suspect]
     Active Substance: GLUCAGON
     Dosage: UNK
     Dates: start: 20251129

REACTIONS (2)
  - Device delivery system issue [Recovered/Resolved]
  - Wrong technique in device usage process [Recovered/Resolved]

NARRATIVE: CASE EVENT DATE: 20251129
